FAERS Safety Report 7499836-2 (Version None)
Quarter: 2011Q2

REPORT INFORMATION
  Report Type: 
  Country: None (occurrence: None)
  Receive Date: 20110524
  Receipt Date: 20110520
  Transmission Date: 20111010
  Serious: Yes (Other)
  Sender: FDA-Public Use
  Company Number: FR-ROCHE-778674

PATIENT
  Sex: Male

DRUGS (4)
  1. CLONAZEPAM [Suspect]
     Route: 048
  2. DUPHALAC [Concomitant]
  3. CYMBALTA [Suspect]
     Route: 048
  4. LYRICA [Suspect]
     Route: 048

REACTIONS (1)
  - SUICIDE ATTEMPT [None]
